FAERS Safety Report 10160280 (Version 1)
Quarter: 2014Q2

REPORT INFORMATION
  Report Type: Spontaneous
  Country: US (occurrence: US)
  Receive Date: 20140508
  Receipt Date: 20140508
  Transmission Date: 20141212
  Serious: Yes (Hospitalization)
  Sender: FDA-Public Use
  Company Number: US-ACTAVIS-2014-09248

PATIENT
  Age: 43 Year
  Sex: Female
  Weight: 66 kg

DRUGS (1)
  1. PREDNISONE (WATSON LABORATORIES) [Suspect]
     Indication: MIGRAINE
     Dosage: 1.5 DF, DAILY
     Route: 048
     Dates: start: 20140222, end: 20140223

REACTIONS (2)
  - Swelling face [Recovered/Resolved]
  - Erythema [Recovered/Resolved]
